FAERS Safety Report 9994595 (Version 2)
Quarter: 2014Q1

REPORT INFORMATION
  Report Type: Report from Study
  Country: FR (occurrence: FR)
  Receive Date: 20140311
  Receipt Date: 20140324
  Transmission Date: 20141002
  Serious: Yes (Hospitalization)
  Sender: FDA-Public Use
  Company Number: FR-BRISTOL-MYERS SQUIBB COMPANY-20352191

PATIENT
  Age: 62 Year
  Sex: Female

DRUGS (6)
  1. IPILIMUMAB [Suspect]
     Indication: METASTATIC MALIGNANT MELANOMA
     Route: 042
     Dates: start: 20130521, end: 20140109
  2. ZALDIAR [Concomitant]
  3. TAHOR [Concomitant]
  4. JANUMET [Concomitant]
  5. SINGULAIR [Concomitant]
  6. BRICANYL [Concomitant]

REACTIONS (1)
  - Cytomegalovirus colitis [Recovered/Resolved]
